FAERS Safety Report 7481384-7 (Version None)
Quarter: 2011Q2

REPORT INFORMATION
  Report Type: 
  Country: None (occurrence: None)
  Receive Date: 20110516
  Receipt Date: 20110427
  Transmission Date: 20111010
  Serious: No
  Sender: FDA-Public Use
  Company Number: US-B.I. PHARMACEUTICALS,INC./RIDGEFIELD-2011-BP-04908BP

PATIENT
  Sex: Female

DRUGS (4)
  1. AMIODARONE HCL [Concomitant]
  2. PRADAXA [Suspect]
     Indication: ATRIAL FIBRILLATION
     Dosage: 300 MG
     Route: 048
     Dates: start: 20110201
  3. FOSAMAX [Concomitant]
  4. SIMVASTATIN [Concomitant]

REACTIONS (4)
  - MOUTH HAEMORRHAGE [None]
  - HERPES ZOSTER [None]
  - HYPOAESTHESIA [None]
  - ARTHRALGIA [None]
